FAERS Safety Report 5838626-0 (Version None)
Quarter: 2008Q3

REPORT INFORMATION
  Report Type: 
  Country: None (occurrence: None)
  Receive Date: 20080808
  Receipt Date: 20080619
  Transmission Date: 20090109
  Serious: No
  Sender: FDA-Public Use
  Company Number: A0733896A

PATIENT

DRUGS (1)
  1. ALTABAX [Suspect]

REACTIONS (1)
  - PAIN [None]
